FAERS Safety Report 7383775 (Version 34)
Quarter: 2017Q3

REPORT INFORMATION
  Report Type: Report from Study
  Country: CA (occurrence: CA)
  Receive Date: 20100511
  Receipt Date: 20170807
  Transmission Date: 20171128
  Serious: Yes (Hospitalization, Other)
  Sender: FDA-Public Use
  Company Number: PHHY2010CA28002

PATIENT
  Age: 38 Year
  Sex: Female

DRUGS (5)
  1. SANDOSTATIN LAR DEPOT [Suspect]
     Active Substance: OCTREOTIDE ACETATE
     Indication: CARCINOID TUMOUR
     Dosage: 30 MG, QW3 (EVERY 3 WEEKS)
     Route: 030
     Dates: start: 20030924
  2. MORPHINE [Concomitant]
     Active Substance: MORPHINE
     Indication: PRODUCT USED FOR UNKNOWN INDICATION
     Route: 065
  3. ATIVAN [Concomitant]
     Active Substance: LORAZEPAM
     Indication: PRODUCT USED FOR UNKNOWN INDICATION
     Route: 065
  4. SANDOSTATIN LAR DEPOT [Suspect]
     Active Substance: OCTREOTIDE ACETATE
     Dosage: 30 MG, QMO (EVERY 4 WEEKS)
     Route: 030
     Dates: start: 20100426
  5. SANDOSTATIN [Suspect]
     Active Substance: OCTREOTIDE ACETATE
     Indication: CARCINOID TUMOUR
     Dosage: 100 UG, BID
     Route: 058

REACTIONS (68)
  - Glioma [Unknown]
  - Amnesia [Unknown]
  - Weight decreased [Unknown]
  - Upper limb fracture [Unknown]
  - Burning sensation [Unknown]
  - Poor quality sleep [Unknown]
  - Arthropod bite [Unknown]
  - Abdominal discomfort [Unknown]
  - Injection site swelling [Unknown]
  - Injection site discomfort [Unknown]
  - Depressed mood [Unknown]
  - Suicidal ideation [Unknown]
  - Blindness [Unknown]
  - Facial paralysis [Unknown]
  - Metastases to central nervous system [Unknown]
  - Pain in extremity [Unknown]
  - Bed bug infestation [Unknown]
  - Somnolence [Unknown]
  - Diarrhoea [Not Recovered/Not Resolved]
  - Injection site pain [Unknown]
  - Injury [Unknown]
  - Fibroma [Unknown]
  - Lymphadenopathy [Unknown]
  - Tooth fracture [Unknown]
  - Metastases to liver [Unknown]
  - Malaise [Unknown]
  - Balance disorder [Unknown]
  - Crying [Unknown]
  - Fatigue [Unknown]
  - Brain oedema [Unknown]
  - Epistaxis [Unknown]
  - Headache [Unknown]
  - Thinking abnormal [Unknown]
  - Paraesthesia [Unknown]
  - Fall [Unknown]
  - Crohn^s disease [Unknown]
  - Abdominal pain [Unknown]
  - Gastric dilatation [Unknown]
  - Respiratory rate increased [Unknown]
  - Syncope [Unknown]
  - Flatulence [Unknown]
  - Inappropriate schedule of drug administration [Unknown]
  - Coma [Recovered/Resolved]
  - Limb injury [Unknown]
  - Stress [Unknown]
  - Asthenia [Unknown]
  - Constipation [Unknown]
  - Nausea [Unknown]
  - Depression [Unknown]
  - Ophthalmoplegia [Unknown]
  - Abdominal hernia [Unknown]
  - Abscess [Unknown]
  - Carcinoid crisis [Unknown]
  - Anxiety [Unknown]
  - Migraine [Unknown]
  - Sleep disorder [Unknown]
  - Abdominal distension [Unknown]
  - Second primary malignancy [Unknown]
  - Emotional disorder [Unknown]
  - Gait disturbance [Unknown]
  - Blood pressure systolic increased [Unknown]
  - Tendonitis [Unknown]
  - Muscle spasms [Unknown]
  - Sinusitis [Unknown]
  - Photophobia [Unknown]
  - Dehydration [Unknown]
  - Vomiting [Unknown]
  - Dyspepsia [Unknown]

NARRATIVE: CASE EVENT DATE: 20030924
